FAERS Safety Report 9716867 (Version 3)
Quarter: 2014Q1

REPORT INFORMATION
  Report Type: Spontaneous
  Country: DE (occurrence: None)
  Receive Date: 20131125
  Receipt Date: 20140320
  Transmission Date: 20141002
  Serious: Yes (Other)
  Sender: FDA-Public Use
  Company Number: TTX201300192

PATIENT
  Sex: Female

DRUGS (10)
  1. MARQIBO [Suspect]
     Indication: NON-HODGKIN^S LYMPHOMA
     Dosage: FOR 22 DAYS.
     Route: 042
     Dates: start: 20130925, end: 20131016
  2. RITUXIMAB (RITUXIMAB) [Concomitant]
  3. CYCLOPHOSPHAMIDE (CYCLOPHOSPHAMIDE) [Concomitant]
  4. DOXORUBICIN (DOXORUBICIN HYDROCHLORIDE) [Concomitant]
  5. PEGFILGRASTIM (PEGFILGRASTIM) [Concomitant]
  6. ACICLOVIR (ACICLOVIR SODIUM) [Concomitant]
  7. COTRIMOXAZOLE (SULFAMETHOXAZOLE, TRIMETHOPRIM) [Concomitant]
  8. CIPROFLOXACIN (CIPROFLOXACIN HYDROCHLORIDE) [Concomitant]
  9. PANTOPRAZOLE (PANTOPRAZOLE) [Concomitant]
  10. PREDNISOLONE (PREDNISOLONE ACETATE) [Concomitant]

REACTIONS (3)
  - Dermatitis [None]
  - Palmar-plantar erythrodysaesthesia syndrome [None]
  - Palmar-plantar erythrodysaesthesia syndrome [None]
